FAERS Safety Report 7555473-2 (Version None)
Quarter: 2011Q2

REPORT INFORMATION
  Report Type: 
  Country: None (occurrence: None)
  Receive Date: 20110617
  Receipt Date: 20110614
  Transmission Date: 20111010
  Serious: Yes (Hospitalization, Other)
  Sender: FDA-Public Use
  Company Number: HU-ABBOTT-11P-076-0704539-00

PATIENT
  Sex: Male
  Weight: 75 kg

DRUGS (10)
  1. ZEMPLAR [Suspect]
     Indication: RENAL FAILURE CHRONIC
     Dosage: 9.5UG/STARTING DOSE /DIALYSIS
     Route: 042
     Dates: start: 20110113
  2. ACENOCUMAROL [Concomitant]
     Indication: PRODUCT USED FOR UNKNOWN INDICATION
     Route: 048
     Dates: end: 20110204
  3. ASPIRIN [Concomitant]
     Indication: PRODUCT USED FOR UNKNOWN INDICATION
     Route: 048
     Dates: start: 20110212
  4. CALCITRIOL [Concomitant]
     Indication: HYPERPARATHYROIDISM SECONDARY
     Dosage: 2MCG DAILY
     Route: 042
     Dates: end: 20110112
  5. MILURIT [Concomitant]
     Indication: PRODUCT USED FOR UNKNOWN INDICATION
     Route: 048
     Dates: start: 20110201
  6. RENAGEL [Concomitant]
     Indication: HYPERPARATHYROIDISM SECONDARY
     Route: 048
     Dates: start: 20060101
  7. ACENOCUMAROL [Concomitant]
     Dates: start: 20110319
  8. ZEMPLAR [Suspect]
     Dosage: DECREASE BY 5MCG/DIALYSIS 3X PER WEEK
     Dates: start: 20110409
  9. ENOXAPARIN SODIUM [Concomitant]
     Indication: PRODUCT USED FOR UNKNOWN INDICATION
     Route: 058
     Dates: start: 20110204, end: 20110212
  10. FRAXIPARINE [Concomitant]
     Indication: PRODUCT USED FOR UNKNOWN INDICATION
     Route: 058
     Dates: start: 20110212

REACTIONS (10)
  - BONE PAIN [None]
  - ARTERIOVENOUS FISTULA SITE COMPLICATION [None]
  - STAPHYLOCOCCAL SEPSIS [None]
  - STAPHYLOCOCCAL BACTERAEMIA [None]
  - ARTHRITIS BACTERIAL [None]
  - INFLAMMATION [None]
  - HYPERTENSION [None]
  - ABSCESS LIMB [None]
  - SEPSIS [None]
  - UPPER RESPIRATORY TRACT INFECTION [None]
